FAERS Safety Report 5878419-1 (Version None)
Quarter: 2008Q3

REPORT INFORMATION
  Report Type: 
  Country: None (occurrence: None)
  Receive Date: 20080911
  Receipt Date: 20080903
  Transmission Date: 20090109
  Serious: Yes (Other)
  Sender: FDA-Public Use
  Company Number: DE-ABBOTT-08P-062-0474226-00

PATIENT
  Sex: Male

DRUGS (11)
  1. HUMIRA [Suspect]
     Indication: PSORIATIC ARTHROPATHY
     Route: 058
     Dates: start: 20070301
  2. INSULIN GLARGINE [Concomitant]
     Indication: DIABETES MELLITUS
     Route: 048
  3. PIROXICAM [Concomitant]
     Indication: PSORIATIC ARTHROPATHY
     Route: 048
  4. PIROXICAM [Concomitant]
     Indication: FIBROMYALGIA
  5. INSULIN ASPART [Concomitant]
     Indication: DIABETES MELLITUS
     Route: 048
  6. DOLOPUREN [Concomitant]
     Indication: PSORIATIC ARTHROPATHY
     Route: 048
  7. DOLOPUREN [Concomitant]
     Indication: FIBROMYALGIA
  8. VALORON N [Concomitant]
     Indication: PSORIATIC ARTHROPATHY
     Route: 048
  9. VALORON N [Concomitant]
     Indication: FIBROMYALGIA
  10. LISINOPRIL [Concomitant]
     Indication: HYPERTENSION
     Route: 048
  11. GINKGO BILOBA EXTRACT [Concomitant]
     Indication: ANGIOPATHY
     Route: 048

REACTIONS (4)
  - ANGINA PECTORIS [None]
  - DIZZINESS [None]
  - DYSPNOEA [None]
  - FALL [None]
